APPROVED DRUG PRODUCT: LOSARTAN POTASSIUM AND HYDROCHLOROTHIAZIDE
Active Ingredient: HYDROCHLOROTHIAZIDE; LOSARTAN POTASSIUM
Strength: 12.5MG;100MG
Dosage Form/Route: TABLET;ORAL
Application: A091652 | Product #002
Applicant: MYLAN PHARMACEUTICALS INC
Approved: Apr 6, 2010 | RLD: No | RS: No | Type: DISCN